FAERS Safety Report 10164033 (Version 1)
Quarter: 2014Q2

REPORT INFORMATION
  Report Type: Spontaneous
  Country: US (occurrence: US)
  Receive Date: 20140510
  Receipt Date: 20140510
  Transmission Date: 20141212
  Serious: No
  Sender: FDA-Public Use
  Company Number: US-BRISTOL-MYERS SQUIBB COMPANY-19833581

PATIENT
  Age: 61 Year
  Sex: Female
  Weight: 104.31 kg

DRUGS (4)
  1. BYETTA [Suspect]
     Indication: TYPE 2 DIABETES MELLITUS
     Dosage: PRESCRIPTION #0183498-1386
     Route: 058
     Dates: start: 201311
  2. ONGLYZA TABS [Suspect]
     Route: 048
  3. GLIPIZIDE [Suspect]
     Route: 048
  4. GLIPIZIDE [Suspect]
     Route: 048

REACTIONS (2)
  - Blood glucose fluctuation [Unknown]
  - Nausea [Unknown]
